FAERS Safety Report 22311473 (Version 2)
Quarter: 2023Q2

REPORT INFORMATION
  Report Type: Spontaneous
  Country: US (occurrence: US)
  Receive Date: 20230511
  Receipt Date: 20230607
  Transmission Date: 20230722
  Serious: Yes (Hospitalization, Other)
  Sender: FDA-Public Use
  Company Number: US-UNITED THERAPEUTICS-UNT-2023-010848

PATIENT
  Age: 70 Year
  Sex: Female
  Weight: 92.517 kg

DRUGS (3)
  1. REMODULIN [Suspect]
     Active Substance: TREPROSTINIL
     Indication: Pulmonary arterial hypertension
     Dosage: 0.084 ?G/KG, CONTINUING
     Route: 041
  2. REMODULIN [Suspect]
     Active Substance: TREPROSTINIL
     Dosage: UNK, CONTINUING
     Route: 041
     Dates: start: 20190408
  3. OPSUMIT [Concomitant]
     Active Substance: MACITENTAN
     Indication: Product used for unknown indication
     Dosage: UNK
     Route: 065

REACTIONS (9)
  - Bladder cancer [Unknown]
  - Oedema peripheral [Unknown]
  - Anxiety [Unknown]
  - Depression [Unknown]
  - Rales [Unknown]
  - Constipation [Unknown]
  - Fatigue [Unknown]
  - Back pain [Unknown]
  - Catheter site exfoliation [Unknown]

NARRATIVE: CASE EVENT DATE: 20230407
